FAERS Safety Report 4509545-7 (Version None)
Quarter: 2004Q4

REPORT INFORMATION
  Report Type: 
  Country: None (occurrence: None)
  Receive Date: 20041119
  Receipt Date: 20041108
  Transmission Date: 20050328
  Serious: Yes (Hospitalization)
  Sender: FDA-Public Use
  Company Number: HQWYE316709NOV04

PATIENT
  Age: 46 Year
  Sex: Male
  Weight: 84 kg

DRUGS (12)
  1. RAPAMUNE [Suspect]
     Indication: PROPHYLAXIS AGAINST TRANSPLANT REJECTION
     Dosage: 5 MG 1X PER 1 DAY, ORAL
     Route: 048
     Dates: start: 20040530, end: 20040615
  2. RAPAMUNE [Suspect]
     Indication: PROPHYLAXIS AGAINST TRANSPLANT REJECTION
     Dosage: 3 MG 1X PER 1 DAY, ORAL
     Route: 048
     Dates: start: 20040616, end: 20040601
  3. NEORAL [Concomitant]
  4. FUROSEMIDE [Concomitant]
  5. MINOXIDIL [Concomitant]
  6. BACTRIM DS [Concomitant]
  7. ESOMEPRAZOLE (ESOMEPRAZOLE) [Concomitant]
  8. LIPITOR [Concomitant]
  9. ISOSORBIDE MONOITRATE (ISOSORBIDE MONONITRATE) [Concomitant]
  10. ASPIRIN [Concomitant]
  11. DILANTIN [Concomitant]
  12. PERCOCET (OXYCODONE HYDROCHLORIDE/OXYCODONE TEREPHTHALATE [Concomitant]

REACTIONS (8)
  - ARTHRALGIA [None]
  - CHONDROPATHY [None]
  - INFLAMMATION [None]
  - MYOSITIS [None]
  - NECK PAIN [None]
  - PAIN IN JAW [None]
  - SINUS DISORDER [None]
  - VASCULAR CALCIFICATION [None]
